FAERS Safety Report 7509602-7 (Version None)
Quarter: 2011Q2

REPORT INFORMATION
  Report Type: 
  Country: None (occurrence: None)
  Receive Date: 20110527
  Receipt Date: 20110520
  Transmission Date: 20111010
  Serious: Yes (Other)
  Sender: FDA-Public Use
  Company Number: US-SANOFI-AVENTIS-2011SA032630

PATIENT
  Age: 66 Year
  Sex: Male

DRUGS (2)
  1. OPTICLICK [Suspect]
  2. LANTUS [Suspect]
     Route: 058
     Dates: start: 20020101

REACTIONS (2)
  - BLINDNESS [None]
  - CATARACT OPERATION [None]
